FAERS Safety Report 7744658-8 (Version None)
Quarter: 2011Q3

REPORT INFORMATION
  Report Type: 
  Country: None (occurrence: None)
  Receive Date: 20110912
  Receipt Date: 20110829
  Transmission Date: 20111222
  Serious: Yes (Hospitalization, Other)
  Sender: FDA-Public Use
  Company Number: PHHY2011BR77799

PATIENT
  Sex: Female
  Weight: 90 kg

DRUGS (5)
  1. DIOVAN [Suspect]
     Dosage: 1 DF(160 MG) BID
     Route: 048
  2. CARVEDILOL [Concomitant]
  3. AAS INFANT [Concomitant]
  4. DIOVAN [Suspect]
     Indication: HYPERTENSION
     Dosage: 1 DF(80 MG)
     Route: 048
  5. CLOPIDOGREL [Concomitant]
     Dosage: 1 DF, UNK

REACTIONS (5)
  - MEMORY IMPAIRMENT [None]
  - DYSPNOEA [None]
  - INFARCTION [None]
  - COUGH [None]
  - PULMONARY OEDEMA [None]
